FAERS Safety Report 9625538 (Version 1)
Quarter: 2013Q4

REPORT INFORMATION
  Report Type: Report from Study
  Country: BR (occurrence: BR)
  Receive Date: 20131016
  Receipt Date: 20131016
  Transmission Date: 20140711
  Serious: Yes (Other)
  Sender: FDA-Public Use
  Company Number: PHHY2013BR115502

PATIENT
  Sex: Female

DRUGS (5)
  1. EXELON PATCH [Suspect]
     Indication: SLEEP DISORDER
     Dosage: 4.5 MG, EVERY DAY AT 7 PM
     Route: 062
     Dates: start: 20130813
  2. EXELON PATCH [Suspect]
     Indication: OFF LABEL USE
  3. PROCIMAX [Suspect]
     Indication: DEPRESSION
     Dosage: 1 DF, IN THE MORNING
     Dates: start: 20130813
  4. PROCIMAX [Suspect]
     Indication: SLEEP DISORDER
  5. NEOZINE [Suspect]
     Indication: SLEEP DISORDER
     Dosage: 5 DRP, AT 10 PM
     Dates: start: 20130813

REACTIONS (8)
  - Pain in extremity [Recovered/Resolved]
  - Pain [Recovered/Resolved]
  - Blood pressure decreased [Recovered/Resolved]
  - Adverse drug reaction [Recovered/Resolved]
  - Dry mouth [Recovered/Resolved]
  - Syncope [Recovered/Resolved]
  - Asthenia [Unknown]
  - Wrong technique in drug usage process [Recovered/Resolved]
